FAERS Safety Report 13063851 (Version 1)
Quarter: 2016Q4

REPORT INFORMATION
  Report Type: Spontaneous
  Country: US (occurrence: US)
  Receive Date: 20161227
  Receipt Date: 20161227
  Transmission Date: 20170207
  Serious: No
  Sender: FDA-Public Use
  Company Number: US-PFIZER INC-2016587589

PATIENT
  Sex: Male

DRUGS (1)
  1. XALKORI [Suspect]
     Active Substance: CRIZOTINIB
     Dosage: UNK

REACTIONS (4)
  - Weight increased [Recovered/Resolved]
  - Fatigue [Recovered/Resolved]
  - Blood testosterone decreased [Recovered/Resolved]
  - Libido decreased [Recovered/Resolved]
